FAERS Safety Report 21458530 (Version 1)
Quarter: 2022Q4

REPORT INFORMATION
  Report Type: Spontaneous
  Country: US (occurrence: None)
  Receive Date: 20221013
  Receipt Date: 20221013
  Transmission Date: 20230112
  Serious: Yes (Disabling, Other)
  Sender: FDA-Public Use
  Company Number: None

PATIENT
  Age: 37 Year
  Sex: Male
  Weight: 72 kg

DRUGS (11)
  1. INAPSINE [Suspect]
     Active Substance: DROPERIDOL
     Indication: Heart rate increased
  2. INAPSINE [Suspect]
     Active Substance: DROPERIDOL
     Indication: Anxiety
  3. OMEPRAZOLE [Concomitant]
     Active Substance: OMEPRAZOLE
  4. FAMOTIDINE [Concomitant]
     Active Substance: FAMOTIDINE
  5. METFORMIN [Concomitant]
     Active Substance: METFORMIN HYDROCHLORIDE
  6. ELIQUIS [Concomitant]
     Active Substance: APIXABAN
  7. DILTIAZEM [Concomitant]
     Active Substance: DILTIAZEM
  8. MONTELUKAST [Concomitant]
     Active Substance: MONTELUKAST SODIUM
  9. flovent hfa ingaler [Concomitant]
  10. BREO ELLIPTA [Concomitant]
     Active Substance: FLUTICASONE FUROATE\VILANTEROL TRIFENATATE
  11. Daily multi vitamin [Concomitant]

REACTIONS (10)
  - Dyspnoea [None]
  - Anxiety [None]
  - Balance disorder [None]
  - Hypertension [None]
  - Disorientation [None]
  - Restlessness [None]
  - Insomnia [None]
  - Palpitations [None]
  - Feeling hot [None]
  - Skin tightness [None]

NARRATIVE: CASE EVENT DATE: 20221003
